FAERS Safety Report 7509146-2 (Version None)
Quarter: 2011Q2

REPORT INFORMATION
  Report Type: 
  Country: None (occurrence: None)
  Receive Date: 20110527
  Receipt Date: 20110518
  Transmission Date: 20111010
  Serious: Yes (Death)
  Sender: FDA-Public Use
  Company Number: TR-B.I. PHARMACEUTICALS,INC./RIDGEFIELD-2011-DE-03135GD

PATIENT
  Sex: Male

DRUGS (4)
  1. ACETYLSALICYLIC ACID SRT [Suspect]
     Indication: ANTIPLATELET THERAPY
     Dosage: 100 MG
  2. HEPARIN [Suspect]
     Indication: ANTICOAGULANT THERAPY
     Dosage: CONTINUOUS INFUSION TO KEEP THE ACTIVATED PARTIAL THROMBOPLASTIN TIME BETWEEN 60-80 S
  3. WARFARIN SODIUM [Suspect]
     Indication: ANTICOAGULANT THERAPY
     Dosage: INTERNATIONAL NORMALIZED RATIO TARGET OF 2.8 TO 3.5
  4. DIPYRIDAMOLE [Suspect]
     Indication: ANTIPLATELET THERAPY

REACTIONS (2)
  - HAEMORRHAGE INTRACRANIAL [None]
  - CEREBROVASCULAR ACCIDENT [None]
